FAERS Safety Report 11432929 (Version 14)
Quarter: 2020Q2

REPORT INFORMATION
  Report Type: Report from Study
  Country: US (occurrence: US)
  Receive Date: 20150828
  Receipt Date: 20200519
  Transmission Date: 20200713
  Serious: No
  Sender: FDA-Public Use
  Company Number: PHHY2015US097755

PATIENT
  Age: 56 Year
  Sex: Female

DRUGS (5)
  1. GILENYA [Suspect]
     Active Substance: FINGOLIMOD HYDROCHLORIDE
     Indication: MULTIPLE SCLEROSIS
     Dosage: QD
     Route: 048
  2. DULOXETINE. [Concomitant]
     Active Substance: DULOXETINE
     Indication: PAIN
  3. GILENYA [Suspect]
     Active Substance: FINGOLIMOD HYDROCHLORIDE
     Dosage: UNK
     Route: 048
     Dates: start: 20150427
  4. OXYBUTIN [Concomitant]
     Active Substance: OXYBUTYNIN
     Indication: POLLAKIURIA
     Dosage: UNK
     Route: 065
     Dates: start: 20170324, end: 20170602
  5. DULOXETINE. [Concomitant]
     Active Substance: DULOXETINE
     Indication: DEPRESSION
     Dosage: UNK
     Route: 065
     Dates: start: 20150427, end: 20150514

REACTIONS (35)
  - Nasal congestion [Recovered/Resolved]
  - Concomitant disease aggravated [Recovered/Resolved]
  - Tinnitus [Recovered/Resolved]
  - Lymphopenia [Recovered/Resolved]
  - Fall [Recovered/Resolved]
  - Haemangioma of skin [Unknown]
  - Scintillating scotoma [Unknown]
  - Skin discolouration [Recovered/Resolved]
  - Irritability [Recovered/Resolved]
  - Vertigo [Recovered/Resolved]
  - Sensory disturbance [Recovered/Resolved]
  - Upper respiratory tract infection [Recovered/Resolved]
  - Sinusitis [Recovered/Resolved]
  - Cough [Recovered/Resolved]
  - Dysphagia [Recovered/Resolved]
  - Urinary hesitation [Recovered/Resolved]
  - Muscle tightness [Recovered/Resolved]
  - Visual impairment [Unknown]
  - Solar lentigo [Unknown]
  - Weight decreased [Recovered/Resolved]
  - Neurofibroma [Recovered/Resolved]
  - Gait disturbance [Unknown]
  - Decreased appetite [Recovered/Resolved]
  - Fatigue [Recovered/Resolved]
  - Neuralgia [Recovered/Resolved]
  - Nausea [Recovered/Resolved]
  - Headache [Recovered/Resolved]
  - Influenza [Recovered/Resolved]
  - Fatigue [Recovered/Resolved]
  - Hot flush [Recovered/Resolved]
  - Micturition urgency [Recovered/Resolved]
  - Muscular weakness [Recovered/Resolved]
  - Balance disorder [Unknown]
  - Fall [Unknown]
  - Sensory disturbance [Unknown]

NARRATIVE: CASE EVENT DATE: 20150427
